FAERS Safety Report 22078287 (Version 3)
Quarter: 2023Q1

REPORT INFORMATION
  Report Type: Report from Study
  Country: TW (occurrence: TW)
  Receive Date: 20230309
  Receipt Date: 20230321
  Transmission Date: 20230417
  Serious: Yes (Life-Threatening, Hospitalization)
  Sender: FDA-Public Use
  Company Number: TW-BAYER-2023A016100

PATIENT
  Age: 54 Year
  Sex: Male
  Weight: 52 kg

DRUGS (38)
  1. REGORAFENIB [Suspect]
     Active Substance: REGORAFENIB
     Indication: Oesophageal squamous cell carcinoma
     Dosage: 90 MG
     Route: 048
     Dates: start: 20210831, end: 20210920
  2. REGORAFENIB [Suspect]
     Active Substance: REGORAFENIB
     Indication: Oesophageal squamous cell carcinoma
     Dosage: 90 MG
     Route: 048
     Dates: start: 20210928, end: 20211018
  3. REGORAFENIB [Suspect]
     Active Substance: REGORAFENIB
     Indication: Oesophageal squamous cell carcinoma
     Dosage: 90 MG
     Route: 048
     Dates: start: 20211026, end: 20211115
  4. REGORAFENIB [Suspect]
     Active Substance: REGORAFENIB
     Indication: Oesophageal squamous cell carcinoma
     Dosage: 90 MG
     Route: 048
     Dates: start: 20211123, end: 20211213
  5. REGORAFENIB [Suspect]
     Active Substance: REGORAFENIB
     Indication: Oesophageal squamous cell carcinoma
     Dosage: 90 MG
     Route: 048
     Dates: start: 20211221, end: 20220110
  6. REGORAFENIB [Suspect]
     Active Substance: REGORAFENIB
     Indication: Oesophageal squamous cell carcinoma
     Dosage: 90 MG
     Route: 048
     Dates: start: 20220127, end: 20220207
  7. REGORAFENIB [Suspect]
     Active Substance: REGORAFENIB
     Indication: Oesophageal squamous cell carcinoma
     Dosage: 90 MG
     Route: 048
     Dates: start: 20220215, end: 20220307
  8. REGORAFENIB [Suspect]
     Active Substance: REGORAFENIB
     Indication: Oesophageal squamous cell carcinoma
     Dosage: 90 MG
     Route: 048
     Dates: start: 20220315, end: 20220404
  9. REGORAFENIB [Suspect]
     Active Substance: REGORAFENIB
     Indication: Oesophageal squamous cell carcinoma
     Dosage: 90 MG
     Route: 048
     Dates: start: 20220412, end: 20220502
  10. REGORAFENIB [Suspect]
     Active Substance: REGORAFENIB
     Indication: Oesophageal squamous cell carcinoma
     Dosage: 90 MG
     Route: 048
     Dates: start: 20220510, end: 20220530
  11. REGORAFENIB [Suspect]
     Active Substance: REGORAFENIB
     Indication: Oesophageal squamous cell carcinoma
     Dosage: 90 MG
     Route: 048
     Dates: start: 20220607, end: 20220627
  12. REGORAFENIB [Suspect]
     Active Substance: REGORAFENIB
     Indication: Oesophageal squamous cell carcinoma
     Dosage: 90 MG
     Route: 048
     Dates: start: 20220705, end: 20220725
  13. REGORAFENIB [Suspect]
     Active Substance: REGORAFENIB
     Indication: Oesophageal squamous cell carcinoma
     Dosage: 90 MG
     Route: 048
     Dates: start: 20220802, end: 20220822
  14. REGORAFENIB [Suspect]
     Active Substance: REGORAFENIB
     Indication: Oesophageal squamous cell carcinoma
     Dosage: 90 MG
     Route: 048
     Dates: start: 20220830, end: 20220919
  15. REGORAFENIB [Suspect]
     Active Substance: REGORAFENIB
     Indication: Oesophageal squamous cell carcinoma
     Dosage: 90 MG
     Route: 048
     Dates: start: 20220927, end: 20221017
  16. REGORAFENIB [Suspect]
     Active Substance: REGORAFENIB
     Indication: Oesophageal squamous cell carcinoma
     Dosage: 90 MG
     Route: 048
     Dates: start: 20221025, end: 20221114
  17. REGORAFENIB [Suspect]
     Active Substance: REGORAFENIB
     Indication: Oesophageal squamous cell carcinoma
     Dosage: 90 MG
     Route: 048
     Dates: start: 20221121, end: 20221211
  18. REGORAFENIB [Suspect]
     Active Substance: REGORAFENIB
     Indication: Oesophageal squamous cell carcinoma
     Dosage: 60 MG
     Route: 048
     Dates: start: 20230106, end: 20230109
  19. REGORAFENIB [Suspect]
     Active Substance: REGORAFENIB
     Indication: Oesophageal squamous cell carcinoma
     Dosage: 60 MG
     Route: 048
     Dates: start: 20230117, end: 20230206
  20. NIVOLUMAB [Suspect]
     Active Substance: NIVOLUMAB
     Indication: Oesophageal squamous cell carcinoma
     Dosage: 480 MG
     Route: 042
     Dates: start: 20210831, end: 20210831
  21. NIVOLUMAB [Suspect]
     Active Substance: NIVOLUMAB
     Indication: Oesophageal squamous cell carcinoma
     Dosage: 480 MG
     Route: 042
     Dates: start: 20210928, end: 20210928
  22. NIVOLUMAB [Suspect]
     Active Substance: NIVOLUMAB
     Indication: Oesophageal squamous cell carcinoma
     Dosage: 480 MG
     Route: 042
     Dates: start: 20211026, end: 20211026
  23. NIVOLUMAB [Suspect]
     Active Substance: NIVOLUMAB
     Indication: Oesophageal squamous cell carcinoma
     Dosage: 480 MG
     Route: 042
     Dates: start: 20211123, end: 20211123
  24. NIVOLUMAB [Suspect]
     Active Substance: NIVOLUMAB
     Indication: Oesophageal squamous cell carcinoma
     Dosage: 480 MG
     Route: 042
     Dates: start: 20211221, end: 20211221
  25. NIVOLUMAB [Suspect]
     Active Substance: NIVOLUMAB
     Indication: Oesophageal squamous cell carcinoma
     Dosage: 480 MG
     Route: 042
     Dates: start: 20220215, end: 20220215
  26. NIVOLUMAB [Suspect]
     Active Substance: NIVOLUMAB
     Indication: Oesophageal squamous cell carcinoma
     Dosage: 480 MG
     Route: 042
     Dates: start: 20220315, end: 20220315
  27. NIVOLUMAB [Suspect]
     Active Substance: NIVOLUMAB
     Indication: Oesophageal squamous cell carcinoma
     Dosage: 480 MG
     Route: 042
     Dates: start: 20220412, end: 20220412
  28. NIVOLUMAB [Suspect]
     Active Substance: NIVOLUMAB
     Indication: Oesophageal squamous cell carcinoma
     Dosage: 480 MG
     Route: 042
     Dates: start: 20220510, end: 20220510
  29. NIVOLUMAB [Suspect]
     Active Substance: NIVOLUMAB
     Indication: Oesophageal squamous cell carcinoma
     Dosage: 480 MG
     Route: 042
     Dates: start: 20220607, end: 20220607
  30. NIVOLUMAB [Suspect]
     Active Substance: NIVOLUMAB
     Indication: Oesophageal squamous cell carcinoma
     Dosage: 480 MG
     Route: 042
     Dates: start: 20220705, end: 20220705
  31. NIVOLUMAB [Suspect]
     Active Substance: NIVOLUMAB
     Indication: Oesophageal squamous cell carcinoma
     Dosage: 480 MG
     Route: 042
     Dates: start: 20220802, end: 20220802
  32. NIVOLUMAB [Suspect]
     Active Substance: NIVOLUMAB
     Indication: Oesophageal squamous cell carcinoma
     Dosage: 480 MG
     Route: 042
     Dates: start: 20220830, end: 20220830
  33. NIVOLUMAB [Suspect]
     Active Substance: NIVOLUMAB
     Indication: Oesophageal squamous cell carcinoma
     Dosage: 480 MG
     Route: 042
     Dates: start: 20220927, end: 20220927
  34. NIVOLUMAB [Suspect]
     Active Substance: NIVOLUMAB
     Indication: Oesophageal squamous cell carcinoma
     Dosage: 480 MG
     Route: 042
     Dates: start: 20221025, end: 20221025
  35. NIVOLUMAB [Suspect]
     Active Substance: NIVOLUMAB
     Indication: Oesophageal squamous cell carcinoma
     Dosage: 480 MG
     Route: 042
     Dates: start: 20221122, end: 20221122
  36. NIVOLUMAB [Suspect]
     Active Substance: NIVOLUMAB
     Indication: Oesophageal squamous cell carcinoma
     Dosage: 480 MG
     Route: 042
     Dates: start: 20230117, end: 20230117
  37. METHYLPREDNISOLONE [Concomitant]
     Active Substance: METHYLPREDNISOLONE
     Indication: Adrenal insufficiency
     Dosage: 40 MG, QD
     Dates: start: 20230307, end: 20230309
  38. PREDNISOLONE [Concomitant]
     Active Substance: PREDNISOLONE
     Dosage: UNK
     Dates: start: 20230310

REACTIONS (3)
  - Pneumonia [Recovering/Resolving]
  - Hyponatraemia [Recovered/Resolved]
  - Pyrexia [Recovered/Resolved]

NARRATIVE: CASE EVENT DATE: 20230209
